FAERS Safety Report 8544806-6 (Version None)
Quarter: 2012Q3

REPORT INFORMATION
  Report Type: 
  Country: None (occurrence: None)
  Receive Date: 20120717
  Receipt Date: 20120702
  Transmission Date: 20120928
  Serious: Yes (Other)
  Sender: FDA-Public Use
  Company Number: ENTC2012-0303

PATIENT
  Age: 77 Year
  Sex: Male

DRUGS (4)
  1. REQUIP XL [Concomitant]
  2. ZOLOFT [Concomitant]
  3. STALEVO 50 [Suspect]
     Indication: PARKINSON'S DISEASE
     Dosage: 125 MG ONCE DAILY
     Dates: start: 20040205
  4. LODOSYN [Concomitant]

REACTIONS (1)
  - INTRAOCULAR MELANOMA [None]
